FAERS Safety Report 17636190 (Version 1)
Quarter: 2020Q2

REPORT INFORMATION
  Report Type: Spontaneous
  Country: CH (occurrence: CH)
  Receive Date: 20200407
  Receipt Date: 20200407
  Transmission Date: 20200713
  Serious: Yes (Hospitalization)
  Sender: FDA-Public Use
  Company Number: CH-TEVA-2020-CH-1220250

PATIENT
  Age: 75 Year
  Sex: Female

DRUGS (5)
  1. BELOC ZOK [Concomitant]
     Active Substance: METOPROLOL SUCCINATE
     Dosage: 100MG
  2. SIMVASTATIN MEPHA [Concomitant]
     Active Substance: SIMVASTATIN
     Dosage: 20MG
  3. ATACAND PLUS [Suspect]
     Active Substance: CANDESARTAN CILEXETIL\HYDROCHLOROTHIAZIDE
     Dosage: INGREDIENT (CANDESARTAN CILEXETIL): 16MG; INGREDIENT (HYDROCHLOROTHIAZIDE): 12.5MG
     Route: 048
     Dates: start: 20200224, end: 20200228
  4. TRAMADOL MEPHA [Suspect]
     Active Substance: TRAMADOL HYDROCHLORIDE
     Dosage: 50 MG
     Route: 048
     Dates: start: 20200224, end: 20200228
  5. PANTOZOL [Concomitant]
     Active Substance: PANTOPRAZOLE SODIUM
     Dosage: 40MG

REACTIONS (1)
  - Hyponatraemia [Recovered/Resolved]

NARRATIVE: CASE EVENT DATE: 20200228
